FAERS Safety Report 15711247 (Version 1)
Quarter: 2018Q4

REPORT INFORMATION
  Report Type: Spontaneous
  Country: US (occurrence: US)
  Receive Date: 20181211
  Receipt Date: 20181211
  Transmission Date: 20190205
  Serious: Yes (Death, Life-Threatening, Hospitalization, Other)
  Sender: FDA-Public Use
  Company Number: US-PFIZER INC-2018508069

PATIENT
  Sex: Female
  Weight: 109.25 kg

DRUGS (2)
  1. CRIZOTINIB [Suspect]
     Active Substance: CRIZOTINIB
     Indication: NON-SMALL CELL LUNG CANCER
     Dosage: 250 MG, 2X/DAY
     Route: 048
     Dates: start: 20161027, end: 20161118
  2. NIVOLUMAB [Suspect]
     Active Substance: NIVOLUMAB
     Indication: NON-SMALL CELL LUNG CANCER
     Dosage: 240 MG, CYCLIC: Q2WK
     Route: 042
     Dates: start: 20161018, end: 20161103

REACTIONS (8)
  - Rhabdomyolysis [Fatal]
  - Hepatitis [Fatal]
  - Pneumonia [Fatal]
  - Sepsis [Fatal]
  - Alanine aminotransferase increased [Fatal]
  - Aspartate aminotransferase [Fatal]
  - Acute myocardial infarction [Fatal]
  - Pneumonitis [Fatal]

NARRATIVE: CASE EVENT DATE: 20161110
